APPROVED DRUG PRODUCT: INDAPAMIDE
Active Ingredient: INDAPAMIDE
Strength: 2.5MG
Dosage Form/Route: TABLET;ORAL
Application: A074299 | Product #001 | TE Code: AB
Applicant: ANI PHARMACEUTICALS INC
Approved: Jul 27, 1995 | RLD: No | RS: Yes | Type: RX